FAERS Safety Report 4623146-1 (Version None)
Quarter: 2005Q1

REPORT INFORMATION
  Report Type: 
  Country: None (occurrence: None)
  Receive Date: 20050330
  Receipt Date: 20050321
  Transmission Date: 20050727
  Serious: Yes (Hospitalization)
  Sender: FDA-Public Use
  Company Number: CA-ABBOTT-05P-028-0295037-00

PATIENT
  Age: 54 Year
  Sex: Female

DRUGS (14)
  1. COLCHICINE [Suspect]
     Indication: GOUT
     Route: 048
  2. COLCHICINE [Suspect]
     Route: 048
  3. COLCHICINE [Suspect]
     Route: 048
  4. GABAPENTIN [Concomitant]
     Indication: DRUG USE FOR UNKNOWN INDICATION
  5. CALCIUM ACETATE [Concomitant]
     Indication: DRUG USE FOR UNKNOWN INDICATION
  6. CALCIUM ACETATE [Concomitant]
  7. SEVELAMER [Concomitant]
     Indication: DRUG USE FOR UNKNOWN INDICATION
  8. EPOGEN [Concomitant]
     Indication: DRUG USE FOR UNKNOWN INDICATION
     Route: 058
  9. MULTIVITAMINS W/MINERALS [Concomitant]
     Indication: DRUG USE FOR UNKNOWN INDICATION
  10. METOCLOPRAMIDE [Concomitant]
     Indication: DRUG USE FOR UNKNOWN INDICATION
  11. FERROUS SULFATE TAB [Concomitant]
     Indication: DRUG USE FOR UNKNOWN INDICATION
  12. DOCUSATE [Concomitant]
     Indication: DRUG USE FOR UNKNOWN INDICATION
  13. SENNA [Concomitant]
     Indication: DRUG USE FOR UNKNOWN INDICATION
  14. GALENIC /PARACETAMOL/CODEINE/ [Concomitant]
     Indication: PAIN
     Dosage: 30-60MG

REACTIONS (5)
  - BLOOD UREA INCREASED [None]
  - HEPATITIS [None]
  - MYOPATHY TOXIC [None]
  - NAUSEA [None]
  - VOMITING [None]
